FAERS Safety Report 4272596-4 (Version None)
Quarter: 2004Q1

REPORT INFORMATION
  Report Type: 
  Country: None (occurrence: None)
  Receive Date: 20040114
  Receipt Date: 20040114
  Transmission Date: 20041129
  Serious: Yes (Death)
  Sender: FDA-Public Use
  Company Number: None

PATIENT
  Age: 79 Year
  Sex: Female
  Weight: 69.9 kg

DRUGS (8)
  1. MYLOTARG [Suspect]
     Indication: ACUTE MYELOID LEUKAEMIA
     Dosage: 17 MG OVER 2 HOU INTRAVENOUS
     Route: 042
     Dates: start: 20031217, end: 20031217
  2. MYLOTARG [Suspect]
     Dosage: 16 MG OVER 2 HOU INTRAVENOUS
     Route: 042
     Dates: start: 20031231, end: 20031231
  3. DIFLUCAN [Concomitant]
  4. VALTREX [Concomitant]
  5. ALLOPURINOL [Concomitant]
  6. CEFEPIME [Concomitant]
  7. ZOFRAN [Concomitant]
  8. LOPRESSOR [Concomitant]

REACTIONS (4)
  - ASTHENIA [None]
  - COUGH [None]
  - PYREXIA [None]
  - STAPHYLOCOCCAL INFECTION [None]
